FAERS Safety Report 23728793 (Version 1)
Quarter: 2024Q2

REPORT INFORMATION
  Report Type: Spontaneous
  Country: US (occurrence: US)
  Receive Date: 20240410
  Receipt Date: 20240410
  Transmission Date: 20240716
  Serious: No
  Sender: FDA-Public Use
  Company Number: US-SMPA-2024SUN000249

PATIENT

DRUGS (2)
  1. APTIOM [Suspect]
     Active Substance: ESLICARBAZEPINE ACETATE
     Dosage: UNK UNK, QD
     Route: 048
  2. APTIOM [Suspect]
     Active Substance: ESLICARBAZEPINE ACETATE
     Dosage: 2000 MG, HS (S FIVE OF THE 400 MG^S OF APTIOM)
     Route: 048

REACTIONS (2)
  - Somnolence [Unknown]
  - Prescribed overdose [Unknown]
